FAERS Safety Report 8293744-5 (Version None)
Quarter: 2012Q2

REPORT INFORMATION
  Report Type: 
  Country: None (occurrence: None)
  Receive Date: 20120413
  Receipt Date: 20120323
  Transmission Date: 20120825
  Serious: Yes (Hospitalization, Other)
  Sender: FDA-Public Use
  Company Number: DSA_56079_2012

PATIENT
  Sex: Female
  Weight: 115.3 kg

DRUGS (11)
  1. TICLOPIDINE HCL [Concomitant]
  2. LIPITOR [Concomitant]
  3. MIGLITOL [Concomitant]
  4. LAXOBERON [Concomitant]
  5. PEGAPTANIB SODIUM (PEGAPTANIB SODIUM) [Suspect]
     Indication: DIABETIC RETINAL OEDEMA
     Dosage: (0.3 MG, PER PROTOCOL INTRAOCULAR)
     Route: 031
     Dates: start: 20110926, end: 20120130
  6. AMLODIPINE [Concomitant]
  7. TRUSOPT [Concomitant]
  8. ZEPOLAS [Concomitant]
  9. NOVOLIN N [Concomitant]
  10. MS HOT PACK [Concomitant]
  11. KINEDAK [Concomitant]

REACTIONS (1)
  - CEREBRAL INFARCTION [None]
